FAERS Safety Report 24090861 (Version 2)
Quarter: 2024Q3

REPORT INFORMATION
  Report Type: Spontaneous
  Country: US (occurrence: US)
  Receive Date: 20240715
  Receipt Date: 20240723
  Transmission Date: 20241016
  Serious: Yes (Other)
  Sender: BRACCO
  Company Number: US-BRACCO-2024US04218

PATIENT
  Age: 32 Year
  Sex: Male

DRUGS (10)
  1. LUMASON [Suspect]
     Active Substance: SULFUR HEXAFLUORIDE
     Indication: Echocardiogram
     Dosage: UNK, SINGLE
     Route: 042
     Dates: start: 20240617, end: 20240617
  2. LUMASON [Suspect]
     Active Substance: SULFUR HEXAFLUORIDE
     Indication: Echocardiogram
     Dosage: UNK, SINGLE
     Route: 042
     Dates: start: 20240617, end: 20240617
  3. LUMASON [Suspect]
     Active Substance: SULFUR HEXAFLUORIDE
     Indication: Echocardiogram
     Dosage: UNK, SINGLE
     Route: 042
     Dates: start: 20240617, end: 20240617
  4. ALLOPURINOL [Concomitant]
     Active Substance: ALLOPURINOL
     Dosage: 100 MG, QD
  5. BRILINTA [Concomitant]
     Active Substance: TICAGRELOR
     Dosage: 90 MG BID
  6. COUMADIN [Concomitant]
     Active Substance: WARFARIN SODIUM
  7. CRESTOR [Concomitant]
     Active Substance: ROSUVASTATIN CALCIUM
     Dosage: 40 MG, QD
  8. LISINOPRIL [Concomitant]
     Active Substance: LISINOPRIL
     Dosage: 2.5 MG, QD
  9. LOVENOX [Concomitant]
     Active Substance: ENOXAPARIN SODIUM
  10. METOPROLOL [Concomitant]
     Active Substance: METOPROLOL
     Dosage: 37.5 MG BID

REACTIONS (7)
  - Loss of consciousness [Unknown]
  - Blood pressure decreased [Unknown]
  - Heart rate decreased [Unknown]
  - Flushing [Unknown]
  - Nausea [Unknown]
  - Urinary incontinence [Unknown]
  - Hyperhidrosis [Unknown]

NARRATIVE: CASE EVENT DATE: 20240617
